FAERS Safety Report 10077669 (Version 1)
Quarter: 2014Q2

REPORT INFORMATION
  Report Type: Spontaneous
  Country: US (occurrence: US)
  Receive Date: 20140414
  Receipt Date: 20140414
  Transmission Date: 20141212
  Serious: No
  Sender: FDA-Public Use
  Company Number: US-BANPHARM-20142181

PATIENT
  Age: 78 Year
  Sex: Male
  Weight: 113.38 kg

DRUGS (8)
  1. NAPROXEN SODIUM 220 MG [Suspect]
     Indication: ARTHRALGIA
     Dosage: 220 MG, ONCE,
     Route: 048
     Dates: start: 20140211, end: 20140211
  2. VITAMIN D [Concomitant]
     Dates: start: 2008
  3. OCCUVITE [Concomitant]
     Dates: start: 2008
  4. FINASTERIDE [Concomitant]
     Dates: start: 2012
  5. TAMSULOSIN [Concomitant]
     Dates: start: 2012
  6. OXYCODONE [Concomitant]
     Dates: start: 2012
  7. ASTELIN [Concomitant]
     Dates: start: 2004
  8. AFRIN [Concomitant]
     Dates: start: 2004

REACTIONS (1)
  - Drug ineffective [Unknown]
